FAERS Safety Report 4960314-3 (Version None)
Quarter: 2006Q1

REPORT INFORMATION
  Report Type: 
  Country: None (occurrence: None)
  Receive Date: 20060328
  Receipt Date: 20050722
  Transmission Date: 20060701
  Serious: Yes (Death)
  Sender: FDA-Public Use
  Company Number: 2005VX000447

PATIENT
  Sex: Female

DRUGS (1)
  1. PERGOLIDE MESYLATE (PERGOLIDE MESYLATE) [Suspect]
     Indication: PARKINSON'S DISEASE
     Dates: start: 19970201, end: 20050601

REACTIONS (6)
  - APATHY [None]
  - CARDIAC DISORDER [None]
  - CARDIAC VALVE DISEASE [None]
  - ECONOMIC PROBLEM [None]
  - FIBROSIS [None]
  - IMPAIRED WORK ABILITY [None]
